FAERS Safety Report 18209478 (Version 2)
Quarter: 2020Q3

REPORT INFORMATION
  Report Type: Spontaneous
  Country: JP (occurrence: JP)
  Receive Date: 20200828
  Receipt Date: 20200918
  Transmission Date: 20201103
  Serious: Yes (Death, Life-Threatening, Hospitalization, Other)
  Sender: FDA-Public Use
  Company Number: JP-009507513-2007JPN001199J

PATIENT
  Age: 50 Year
  Sex: Male
  Weight: 66 kg

DRUGS (11)
  1. PEMETREXED DISODIUM [Suspect]
     Active Substance: PEMETREXED DISODIUM
     Indication: LUNG ADENOCARCINOMA STAGE IV
     Dosage: UNK, ONCE
     Route: 041
     Dates: start: 20200616, end: 20200616
  2. ACETAMINOPHEN. [Suspect]
     Active Substance: ACETAMINOPHEN
     Dosage: UNK
     Route: 048
     Dates: end: 20200709
  3. BAKTAR [Suspect]
     Active Substance: SULFAMETHOXAZOLE\TRIMETHOPRIM
     Dosage: UNK
     Route: 048
     Dates: end: 20200709
  4. GLYCEOL [Suspect]
     Active Substance: GLYCERIN
     Indication: BRAIN OEDEMA
     Dosage: 200 MILLILITER/DAY
     Route: 041
     Dates: start: 20200619, end: 20200623
  5. NEXIUM [Suspect]
     Active Substance: ESOMEPRAZOLE MAGNESIUM
     Dosage: UNK
     Route: 048
     Dates: end: 20200709
  6. LOXONIN [Suspect]
     Active Substance: LOXOPROFEN SODIUM
     Dosage: UNK
     Route: 048
     Dates: end: 20200709
  7. ZYPREXA [Suspect]
     Active Substance: OLANZAPINE
     Indication: NAUSEA
     Dosage: 2.5 MILLIGRAM, QD
     Route: 048
     Dates: start: 20200622, end: 20200716
  8. KEYTRUDA [Suspect]
     Active Substance: PEMBROLIZUMAB
     Indication: LUNG ADENOCARCINOMA STAGE IV
     Dosage: 200 MILLIGRAM, Q3W
     Route: 041
     Dates: start: 20200616, end: 20200616
  9. CARBOPLATIN. [Suspect]
     Active Substance: CARBOPLATIN
     Indication: LUNG ADENOCARCINOMA STAGE IV
     Dosage: UNK, ONCE
     Route: 041
     Dates: start: 20200616, end: 20200616
  10. DECADRON [Suspect]
     Active Substance: DEXAMETHASONE
     Indication: NAUSEA
     Dosage: 0.5 MILLIGRAM, QID
     Route: 048
     Dates: start: 20200617, end: 20200622
  11. DOMPERIDONE [Suspect]
     Active Substance: DOMPERIDONE
     Indication: NAUSEA
     Dosage: 10 MILLIGRAM, TID
     Route: 048
     Dates: start: 20200617, end: 20200622

REACTIONS (6)
  - Hydrocephalus [Unknown]
  - Toxic epidermal necrolysis [Recovered/Resolved]
  - Liver disorder [Unknown]
  - Renal disorder [Unknown]
  - Epidural haemorrhage [Unknown]
  - Malignant neoplasm progression [Fatal]

NARRATIVE: CASE EVENT DATE: 2020
